FAERS Safety Report 8715703 (Version 3)
Quarter: 2012Q4

REPORT INFORMATION
  Report Type: 
  Country: US (occurrence: US)
  Receive Date: 20120809
  Receipt Date: 20121024
  Transmission Date: 20130627
  Serious: Yes (Other)
  Sender: FDA-Public Use
  Company Number: US-PFIZER INC-2012191361

PATIENT
  Age: 74 Year
  Sex: Male
  Weight: 76.1 kg

DRUGS (2)
  1. SUTENT [Suspect]
     Indication: METASTATIC RENAL CELL CARCINOMA
     Dosage: 50 mg, for five 42 day cycles
     Dates: start: 20120201, end: 20120615
  2. SUTENT [Suspect]
     Dosage: 50 mg, for five 42 day cycles
     Dates: start: 20120706

REACTIONS (7)
  - Limb operation [Unknown]
  - Bone pain [Unknown]
  - Constipation [Unknown]
  - Dry mouth [Unknown]
  - Weight decreased [Unknown]
  - Abdominal discomfort [Unknown]
  - Mucous stools [Unknown]
